FAERS Safety Report 8454208-9 (Version None)
Quarter: 2012Q2

REPORT INFORMATION
  Report Type: 
  Country: None (occurrence: None)
  Receive Date: 20120620
  Receipt Date: 20120614
  Transmission Date: 20120825
  Serious: Yes (Other)
  Sender: FDA-Public Use
  Company Number: MX-ROCHE-1079919

PATIENT
  Sex: Female

DRUGS (2)
  1. RITUXIMAB [Suspect]
     Indication: RHEUMATOID ARTHRITIS
  2. RITUXIMAB [Suspect]
     Dates: start: 20120501

REACTIONS (4)
  - THROAT IRRITATION [None]
  - COUGH [None]
  - MOUTH ULCERATION [None]
  - INFLUENZA LIKE ILLNESS [None]
